FAERS Safety Report 7536168-8 (Version None)
Quarter: 2011Q2

REPORT INFORMATION
  Report Type: 
  Country: None (occurrence: None)
  Receive Date: 20110602
  Receipt Date: 20110520
  Transmission Date: 20111010
  Serious: Yes (Other)
  Sender: FDA-Public Use
  Company Number: 2011P1006711

PATIENT
  Age: 47 Year
  Sex: Female

DRUGS (2)
  1. DARAPRIM [Suspect]
     Indication: GASTROINTESTINAL DISORDER
     Dosage: 25 MG; QID; PO
     Route: 048
     Dates: start: 20080718, end: 20080728
  2. FYBOGEL SACHETS [Concomitant]

REACTIONS (15)
  - ABDOMINAL DISTENSION [None]
  - PALPITATIONS [None]
  - MOUTH ULCERATION [None]
  - DRUG PRESCRIBING ERROR [None]
  - ANAEMIA VITAMIN B12 DEFICIENCY [None]
  - SPEECH DISORDER [None]
  - ACCIDENTAL OVERDOSE [None]
  - UNEVALUABLE EVENT [None]
  - HEADACHE [None]
  - CARDIAC MURMUR [None]
  - MALAISE [None]
  - ASTHENIA [None]
  - PANCYTOPENIA [None]
  - FATIGUE [None]
  - TREMOR [None]
